FAERS Safety Report 6393295-9 (Version None)
Quarter: 2009Q4

REPORT INFORMATION
  Report Type: 
  Country: None (occurrence: None)
  Receive Date: 20091008
  Receipt Date: 20090924
  Transmission Date: 20100525
  Serious: Yes (Hospitalization, Other)
  Sender: FDA-Public Use
  Company Number: PHHY2009BR41438

PATIENT
  Age: 71 Year
  Sex: Male

DRUGS (1)
  1. DIOVAN AMLO FIX [Suspect]
     Dosage: 320/5 MG

REACTIONS (4)
  - OESOPHAGEAL STENOSIS [None]
  - OESOPHAGITIS [None]
  - PANCREATIC CARCINOMA [None]
  - ULCER [None]
